FAERS Safety Report 21317957 (Version 2)
Quarter: 2022Q4

REPORT INFORMATION
  Report Type: Spontaneous
  Country: US (occurrence: US)
  Receive Date: 20220911
  Receipt Date: 20221221
  Transmission Date: 20230112
  Serious: No
  Sender: FDA-Public Use
  Company Number: US-SANOFI-01245048

PATIENT
  Age: 63 Year
  Sex: Female

DRUGS (2)
  1. DUPIXENT [Suspect]
     Active Substance: DUPILUMAB
     Indication: Skin ulcer
     Dosage: 300 MG, QOW
     Route: 058
  2. INSULIN HUMAN [Concomitant]
     Active Substance: INSULIN HUMAN

REACTIONS (1)
  - Product use in unapproved indication [Unknown]
